FAERS Safety Report 10304281 (Version 2)
Quarter: 2015Q1

REPORT INFORMATION
  Report Type: Spontaneous
  Country: DE (occurrence: DE)
  Receive Date: 20140714
  Receipt Date: 20150109
  Transmission Date: 20150720
  Serious: Yes (Hospitalization)
  Sender: FDA-Public Use
  Company Number: DE-BRACCO-001705

PATIENT
  Age: 60 Year
  Sex: Male

DRUGS (9)
  1. SOLUTRAST [Suspect]
     Active Substance: IOPAMIDOL
     Indication: SPINAL MYELOGRAM
     Route: 037
     Dates: start: 20140617, end: 20140617
  2. ASPIRIN. [Concomitant]
     Active Substance: ASPIRIN
  3. FRUSEMID [Concomitant]
  4. MIRTAZAPINE. [Concomitant]
     Active Substance: MIRTAZAPINE
  5. CITALOPRAM [Concomitant]
     Active Substance: CITALOPRAM HYDROBROMIDE
  6. FLUVASTATIN [Concomitant]
     Active Substance: FLUVASTATIN SODIUM
  7. TILIDINE [Concomitant]
     Active Substance: TILIDINE
  8. METOPROLOL [Concomitant]
     Active Substance: METOPROLOL
  9. PANTOPRAZOLE [Concomitant]
     Active Substance: PANTOPRAZOLE SODIUM

REACTIONS (5)
  - Vomiting [Recovered/Resolved]
  - Meningism [Recovered/Resolved]
  - Contrast encephalopathy [Recovered/Resolved]
  - Nausea [Recovered/Resolved]
  - Brain oedema [Recovered/Resolved]

NARRATIVE: CASE EVENT DATE: 20140619
